FAERS Safety Report 18017236 (Version 1)
Quarter: 2020Q3

REPORT INFORMATION
  Report Type: Spontaneous
  Country: ES (occurrence: ES)
  Receive Date: 20200714
  Receipt Date: 20200714
  Transmission Date: 20201103
  Serious: Yes (Hospitalization, Other)
  Sender: FDA-Public Use
  Company Number: ES-LUPIN PHARMACEUTICALS INC.-2020-03274

PATIENT
  Age: 66 Year
  Sex: Male

DRUGS (5)
  1. DULOXETINE. [Suspect]
     Active Substance: DULOXETINE
     Indication: BIPOLAR DISORDER
     Dosage: 120 MILLIGRAM, QD
     Route: 065
  2. LITHIUM. [Interacting]
     Active Substance: LITHIUM
     Indication: BIPOLAR DISORDER
     Dosage: 800 MILLIGRAM, QD
     Route: 065
  3. LOPINAVIR/RITONAVIR [Interacting]
     Active Substance: LOPINAVIR\RITONAVIR
     Indication: COVID-19
     Dosage: 400/100 MG, BID
     Route: 065
  4. HALOPERIDOL. [Interacting]
     Active Substance: HALOPERIDOL
     Indication: DELIRIUM
     Dosage: 1 MILLIGRAM, BID
     Route: 065
  5. HYDROXYCHLOROQUINE [Suspect]
     Active Substance: HYDROXYCHLOROQUINE
     Indication: COVID-19
     Dosage: 200 MILLIGRAM, BID
     Route: 065

REACTIONS (5)
  - Encephalopathy [Recovering/Resolving]
  - Serotonin syndrome [Recovering/Resolving]
  - Off label use [Unknown]
  - Urinary retention [Recovering/Resolving]
  - Drug interaction [Unknown]
